FAERS Safety Report 5761233-5 (Version None)
Quarter: 2008Q2

REPORT INFORMATION
  Report Type: 
  Country: None (occurrence: None)
  Receive Date: 20080606
  Receipt Date: 20080530
  Transmission Date: 20081010
  Serious: Yes (Death, Congenital Anomaly, Other)
  Sender: FDA-Public Use
  Company Number: PHHY2008BR09744

PATIENT

DRUGS (4)
  1. ANAFRANIL [Suspect]
  2. TRILEPTAL [Suspect]
     Route: 064
  3. RIVOTRIL [Concomitant]
     Route: 064
  4. TYLENOL [Concomitant]
     Route: 064

REACTIONS (4)
  - DRUG EXPOSURE DURING PREGNANCY [None]
  - GASTROSCHISIS [None]
  - INTRA-UTERINE DEATH [None]
  - STILLBIRTH [None]
